FAERS Safety Report 16004048 (Version 2)
Quarter: 2019Q1

REPORT INFORMATION
  Report Type: Spontaneous
  Country: FR (occurrence: FR)
  Receive Date: 20190225
  Receipt Date: 20190226
  Transmission Date: 20190418
  Serious: Yes (Death)
  Sender: FDA-Public Use
  Company Number: FR-ACCORD-108922

PATIENT
  Age: 44 Year
  Sex: Male
  Weight: 64 kg

DRUGS (6)
  1. HOLOXAN [Suspect]
     Active Substance: IFOSFAMIDE
     Indication: TESTICULAR GERM CELL TUMOUR
     Route: 042
     Dates: start: 20180608, end: 20180612
  2. VEPESIDE [Suspect]
     Active Substance: ETOPOSIDE
     Indication: TESTICULAR GERM CELL TUMOUR
     Route: 042
     Dates: start: 20180406, end: 20180522
  3. TAXOL [Concomitant]
     Active Substance: PACLITAXEL
     Indication: TESTICULAR GERM CELL TUMOUR
     Route: 042
     Dates: start: 20180427
  4. OXALIPLATIN. [Suspect]
     Active Substance: OXALIPLATIN
     Indication: TESTICULAR GERM CELL TUMOUR
     Route: 042
     Dates: start: 20180506, end: 20180528
  5. CISPLATIN. [Suspect]
     Active Substance: CISPLATIN
     Indication: TESTICULAR GERM CELL TUMOUR
     Route: 042
     Dates: start: 20180406, end: 20180612
  6. BLEOMYCIN [Suspect]
     Active Substance: BLEOMYCIN SULFATE
     Indication: TESTICULAR GERM CELL TUMOUR
     Route: 042
     Dates: start: 20180406, end: 20180612

REACTIONS (3)
  - Interstitial lung disease [Fatal]
  - Acute respiratory failure [None]
  - Off label use [Unknown]

NARRATIVE: CASE EVENT DATE: 20180706
